FAERS Safety Report 20958365 (Version 2)
Quarter: 2022Q2

REPORT INFORMATION
  Report Type: Other
  Country: US (occurrence: None)
  Receive Date: 20220614
  Receipt Date: 20220615
  Transmission Date: 20220721
  Serious: Yes (Death)
  Sender: FDA-Public Use
  Company Number: US-ROCHE-3111646

PATIENT
  Sex: Male

DRUGS (11)
  1. COTELLIC [Suspect]
     Active Substance: COBIMETINIB
     Indication: Retroperitoneal cancer
     Dosage: TAKE 3 TABLETS BY MOUTH DAILY FOR 21 DAYS EVERY 28 DAY CYCLE
     Route: 048
  2. COTELLIC [Suspect]
     Active Substance: COBIMETINIB
     Indication: Metastases to peritoneum
  3. COTELLIC [Suspect]
     Active Substance: COBIMETINIB
     Indication: Colorectal cancer metastatic
  4. COTELLIC [Suspect]
     Active Substance: COBIMETINIB
     Indication: Metastases to liver
  5. COTELLIC [Suspect]
     Active Substance: COBIMETINIB
     Indication: Cholangiocarcinoma
  6. COTELLIC [Suspect]
     Active Substance: COBIMETINIB
     Indication: Colon cancer
  7. TECENTRIQ [Suspect]
     Active Substance: ATEZOLIZUMAB
     Indication: Colorectal cancer metastatic
     Dosage: INFUSE 840MG INTRAVENOUSLY EVERY 14 DAYS
     Route: 042
  8. TECENTRIQ [Suspect]
     Active Substance: ATEZOLIZUMAB
     Indication: Metastases to liver
  9. TECENTRIQ [Suspect]
     Active Substance: ATEZOLIZUMAB
     Indication: Cholangiocarcinoma
  10. TECENTRIQ [Suspect]
     Active Substance: ATEZOLIZUMAB
     Indication: Retroperitoneal cancer
  11. TECENTRIQ [Suspect]
     Active Substance: ATEZOLIZUMAB
     Indication: Metastases to peritoneum

REACTIONS (2)
  - Death [Fatal]
  - Off label use [Fatal]
